FAERS Safety Report 8846800 (Version 2)
Quarter: 2013Q1

REPORT INFORMATION
  Report Type: Spontaneous
  Country: US (occurrence: None)
  Receive Date: 20121016
  Receipt Date: 20121108
  Transmission Date: 20140127
  Serious: Yes (Death, Life-Threatening, Hospitalization)
  Sender: FDA-Public Use
  Company Number: DSA_60156_2012

PATIENT
  Age: 8 Month
  Sex: Female
  Weight: 70.3 kg

DRUGS (12)
  1. XENAZINE 25 MG (NOT SPECIFIED) [Suspect]
     Indication: HUNTINGTON^S DISEASE
     Route: 048
     Dates: start: 201202, end: 20121009
  2. LACTAID [Concomitant]
  3. CELEXA [Concomitant]
  4. DEPAKENE /0228501/ [Concomitant]
  5. TOPROL XL [Concomitant]
  6. ZYPREXA [Concomitant]
  7. ASPIRIN [Concomitant]
  8. CHRONULAC [Concomitant]
  9. FENOFIBRATE [Concomitant]
  10. MIRALAX /00754501/ [Concomitant]
  11. PRILOSEC /00661201/ [Concomitant]
  12. CLARITIN [Concomitant]

REACTIONS (13)
  - Hospice care [None]
  - Irritability [None]
  - Urinary tract infection [None]
  - Abnormal behaviour [None]
  - Pneumonia aspiration [None]
  - Speech disorder [None]
  - Coordination abnormal [None]
  - Dysphagia [None]
  - Choking [None]
  - Bradykinesia [None]
  - Gait disturbance [None]
  - Cognitive disorder [None]
  - Condition aggravated [None]
